FAERS Safety Report 8372976-1 (Version None)
Quarter: 2012Q2

REPORT INFORMATION
  Report Type: 
  Country: None (occurrence: None)
  Receive Date: 20120521
  Receipt Date: 20120127
  Transmission Date: 20120825
  Serious: No
  Sender: FDA-Public Use
  Company Number: US-ASTRAZENECA-2012SE08738

PATIENT
  Sex: Male

DRUGS (1)
  1. PRILOSEC OTC [Suspect]
     Dosage: 1 TABLET, 1 /DAY
     Route: 048
     Dates: start: 20120123, end: 20120126

REACTIONS (1)
  - FAECES DISCOLOURED [None]
